FAERS Safety Report 20335001 (Version 1)
Quarter: 2022Q1

REPORT INFORMATION
  Report Type: Spontaneous
  Country: GB (occurrence: GB)
  Receive Date: 20220114
  Receipt Date: 20220114
  Transmission Date: 20220423
  Serious: Yes (Other)
  Sender: FDA-Public Use
  Company Number: GB-CELLTRION INC.-2022GB000353

PATIENT

DRUGS (6)
  1. INFLECTRA [Suspect]
     Active Substance: INFLIXIMAB-DYYB
     Indication: Product used for unknown indication
     Dosage: RE-STARTED AT 10:15 AM, DOSE RE-INTRODUCED
     Route: 065
     Dates: start: 20211222, end: 20211222
  2. INFLECTRA [Suspect]
     Active Substance: INFLIXIMAB-DYYB
     Dosage: RE-STARTED AT 11:08
     Route: 065
     Dates: start: 20211222, end: 20211222
  3. INFLECTRA [Suspect]
     Active Substance: INFLIXIMAB-DYYB
     Dosage: 250 MG
     Route: 065
     Dates: start: 20211222, end: 20211222
  4. SODIUM CHLORIDE [Suspect]
     Active Substance: SODIUM CHLORIDE
     Indication: Medication dilution
     Dosage: RE-STARTED AT 11:08
     Route: 065
     Dates: start: 20211222, end: 20211222
  5. SODIUM CHLORIDE [Suspect]
     Active Substance: SODIUM CHLORIDE
     Dosage: RE-STARTED AT 10:15 AM, DOSE RE-INTRODUCED
     Route: 065
     Dates: start: 20211222, end: 20211222
  6. SODIUM CHLORIDE [Suspect]
     Active Substance: SODIUM CHLORIDE
     Dosage: UNK
     Route: 065
     Dates: start: 20211222, end: 20211222

REACTIONS (3)
  - Feeling hot [Recovering/Resolving]
  - Swelling [Recovering/Resolving]
  - Eye irritation [Recovering/Resolving]

NARRATIVE: CASE EVENT DATE: 20211222
